FAERS Safety Report 8413679-4 (Version None)
Quarter: 2012Q2

REPORT INFORMATION
  Report Type: 
  Country: None (occurrence: None)
  Receive Date: 20120605
  Receipt Date: 20120517
  Transmission Date: 20120825
  Serious: No
  Sender: FDA-Public Use
  Company Number: JP-ROCHE-1047765

PATIENT
  Age: 40 Year
  Sex: Female

DRUGS (4)
  1. TAMIFLU [Suspect]
     Indication: PRODUCT USED FOR UNKNOWN INDICATION
     Route: 048
     Dates: start: 20120221, end: 20120221
  2. TAMIFLU [Suspect]
     Route: 048
     Dates: start: 20120222, end: 20120222
  3. SP [Concomitant]
     Dosage: DOSAGE IS UNCERTAIN.
     Route: 049
  4. AZUNOL [Concomitant]
     Dosage: DOSAGE IS UNCERTAIN.
     Route: 049

REACTIONS (3)
  - MATERNAL EXPOSURE DURING PREGNANCY [None]
  - VOMITING [None]
  - OVERDOSE [None]
